FAERS Safety Report 11437375 (Version 1)
Quarter: 2015Q3

REPORT INFORMATION
  Report Type: Spontaneous
  Country: US (occurrence: US)
  Receive Date: 20150821
  Receipt Date: 20150821
  Transmission Date: 20151125
  Serious: No
  Sender: FDA-Public Use
  Company Number: US-ELI_LILLY_AND_COMPANY-US200704003938

PATIENT
  Age: 37 Year
  Sex: Female

DRUGS (5)
  1. NEXIUM /USA/ [Concomitant]
     Dosage: UNK, UNKNOWN
  2. XANAX [Concomitant]
     Active Substance: ALPRAZOLAM
     Dosage: UNK, UNKNOWN
  3. CYMBALTA [Suspect]
     Active Substance: DULOXETINE HYDROCHLORIDE
     Indication: PANIC ATTACK
     Dosage: 30 MG, UNKNOWN
     Route: 048
     Dates: start: 200610, end: 20070412
  4. PREVACID [Concomitant]
     Active Substance: LANSOPRAZOLE
     Dosage: UNK, UNKNOWN
  5. ALCOHOL. [Concomitant]
     Active Substance: ALCOHOL
     Dosage: UNK, UNKNOWN

REACTIONS (5)
  - Irritability [Unknown]
  - Alcohol use [Unknown]
  - Mood swings [Not Recovered/Not Resolved]
  - Dizziness [Not Recovered/Not Resolved]
  - Anger [Unknown]
